FAERS Safety Report 16989940 (Version 1)
Quarter: 2019Q4

REPORT INFORMATION
  Report Type: Spontaneous
  Country: US (occurrence: US)
  Receive Date: 20190920
  Receipt Date: 20190920
  Transmission Date: 20200122
  Serious: Yes (Hospitalization)
  Sender: FDA-Public Use
  Company Number: None

PATIENT
  Age: 41 Year
  Sex: Female

DRUGS (27)
  1. PREDNISONE. [Concomitant]
     Active Substance: PREDNISONE
  2. TRULICITY [Concomitant]
     Active Substance: DULAGLUTIDE
  3. CHANTIX [Concomitant]
     Active Substance: VARENICLINE TARTRATE
  4. HUMIRA [Suspect]
     Active Substance: ADALIMUMAB
     Indication: RHEUMATIC HEART DISEASE
     Dosage: ?          OTHER FREQUENCY:EVERY 2 WEEKS;?
     Route: 058
     Dates: start: 20190830
  5. LIDOCAINE. [Concomitant]
     Active Substance: LIDOCAINE
  6. PREGABALIN. [Concomitant]
     Active Substance: PREGABALIN
  7. SAVELLA [Concomitant]
     Active Substance: MILNACIPRAN HYDROCHLORIDE
  8. HYDROCO [Concomitant]
  9. TRIAMCINOLON CRE [Concomitant]
  10. DULOXETINE. [Concomitant]
     Active Substance: DULOXETINE
  11. LISINOPRIL. [Concomitant]
     Active Substance: LISINOPRIL
  12. PANTOPRAZOLE [Concomitant]
     Active Substance: PANTOPRAZOLE
  13. SLIMVASTATIN [Concomitant]
  14. XIIDRA DRO [Concomitant]
  15. FOLIC ACID. [Concomitant]
     Active Substance: FOLIC ACID
  16. HYDROXYCHLOR [Concomitant]
     Active Substance: HYDROXYCHLOROQUINE
  17. METFORMIN [Concomitant]
     Active Substance: METFORMIN HYDROCHLORIDE
  18. METHOTREXATE. [Concomitant]
     Active Substance: METHOTREXATE
  19. HUMIRA [Suspect]
     Active Substance: ADALIMUMAB
     Indication: RHEUMATOID ARTHRITIS
     Dosage: ?          OTHER FREQUENCY:EVERY 2 WEEKS;?
     Route: 058
     Dates: start: 20190830
  20. TIZANIDINE. [Concomitant]
     Active Substance: TIZANIDINE
  21. VERAPAMIL [Concomitant]
     Active Substance: VERAPAMIL HYDROCHLORIDE
  22. DICYCLOMINE [Concomitant]
     Active Substance: DICYCLOMINE HYDROCHLORIDE
  23. HYDROCHLOROT [Concomitant]
     Active Substance: HYDROCHLOROTHIAZIDE
  24. SUCRALFATE. [Concomitant]
     Active Substance: SUCRALFATE
  25. ZOFRAN [Concomitant]
     Active Substance: ONDANSETRON HYDROCHLORIDE
  26. RANITIDINE. [Concomitant]
     Active Substance: RANITIDINE
  27. TRESIBA FLEX INJ [Concomitant]

REACTIONS (2)
  - Condition aggravated [None]
  - Pain [None]

NARRATIVE: CASE EVENT DATE: 20190917
